FAERS Safety Report 14568974 (Version 2)
Quarter: 2018Q1

REPORT INFORMATION
  Report Type: Spontaneous
  Country: US (occurrence: US)
  Receive Date: 20180223
  Receipt Date: 20180309
  Transmission Date: 20180509
  Serious: Yes (Other)
  Sender: FDA-Public Use
  Company Number: US-009507513-1802USA007465

PATIENT

DRUGS (3)
  1. BCG LIVE [Suspect]
     Active Substance: BACILLUS CALMETTE-GUERIN SUBSTRAIN TICE LIVE ANTIGEN
     Indication: BLADDER CANCER
     Dosage: INDUCTION COURSE OF 6-WEEKLY INSTILLATIONS
     Route: 043
  2. BCG LIVE [Suspect]
     Active Substance: BACILLUS CALMETTE-GUERIN SUBSTRAIN TICE LIVE ANTIGEN
     Dosage: MAINTENANCE OF 3-WEEKLY INSTILLATIONS AT 3 AND 6 MONTHS FOLLOWING INDUCTION.
     Route: 043
  3. BCG LIVE [Suspect]
     Active Substance: BACILLUS CALMETTE-GUERIN SUBSTRAIN TICE LIVE ANTIGEN
     Dosage: MAINTENANCE OF 3-WEEKLY INSTILLATIONS VERY 6 MONTHS FOR UP TO 3 YEARS.
     Route: 043

REACTIONS (3)
  - Bladder cancer recurrent [Unknown]
  - Refractory cancer [Unknown]
  - Drug intolerance [Unknown]
